FAERS Safety Report 16037032 (Version 1)
Quarter: 2019Q1

REPORT INFORMATION
  Report Type: Spontaneous
  Country: US (occurrence: US)
  Receive Date: 20190305
  Receipt Date: 20190305
  Transmission Date: 20190418
  Serious: No
  Sender: FDA-Public Use
  Company Number: US-BAUSCH-BL-2019-005175

PATIENT
  Age: 56 Year
  Sex: Female
  Weight: 47.63 kg

DRUGS (3)
  1. EUCRISA [Concomitant]
     Active Substance: CRISABOROLE
     Indication: DRY SKIN
  2. EUCRISA [Concomitant]
     Active Substance: CRISABOROLE
     Indication: SKIN EXFOLIATION
     Dosage: THIN LAYER OF CREAM ON HER FOREHEAD AND CHEEK BONES
     Route: 061
     Dates: start: 20180511, end: 20180517
  3. ELIDEL [Suspect]
     Active Substance: PIMECROLIMUS
     Indication: URTICARIA
     Route: 065
     Dates: start: 201805

REACTIONS (1)
  - Pruritus [Unknown]

NARRATIVE: CASE EVENT DATE: 20180517
